FAERS Safety Report 8264996-2 (Version None)
Quarter: 2012Q2

REPORT INFORMATION
  Report Type: 
  Country: None (occurrence: None)
  Receive Date: 20120406
  Receipt Date: 20120328
  Transmission Date: 20120825
  Serious: Yes (Life-Threatening, Hospitalization)
  Sender: FDA-Public Use
  Company Number: AT-VERTEX PHARMACEUTICALS INC.-000000000000000429

PATIENT
  Sex: Female

DRUGS (8)
  1. COPEGUS [Concomitant]
     Indication: HEPATITIS C
     Dosage: DOSAGE FORM: TABLET
     Dates: start: 20120301
  2. INCIVO (TELAPREVIR) [Suspect]
     Indication: HEPATITIS C
     Dosage: DOSAGE FORM: TABLET
     Dates: start: 20120301
  3. PEGASYS [Concomitant]
     Indication: HEPATITIS C
     Route: 058
     Dates: start: 20120301
  4. RAMIPRIL [Concomitant]
     Dosage: DOSAGE FORM: TABLET
  5. RAMI-Q COMP. [Concomitant]
  6. CARVEDILOL [Concomitant]
     Dosage: DOSAGE FORM: TABLET
  7. JANUVIA [Concomitant]
     Dosage: DOSAGE FORM: TABLET
  8. ASPIRIN [Concomitant]

REACTIONS (1)
  - RENAL FAILURE ACUTE [None]
